FAERS Safety Report 7604236-8 (Version None)
Quarter: 2011Q3

REPORT INFORMATION
  Report Type: 
  Country: None (occurrence: None)
  Receive Date: 20110712
  Receipt Date: 20110704
  Transmission Date: 20111222
  Serious: Yes (Hospitalization)
  Sender: FDA-Public Use
  Company Number: LT-GLAXOSMITHKLINE-B0732126A

PATIENT
  Age: 28 Year
  Sex: Male
  Weight: 80 kg

DRUGS (2)
  1. CARBAMAZEPINE [Suspect]
     Indication: SUICIDE ATTEMPT
     Route: 048
     Dates: start: 20110514
  2. LAMICTAL [Suspect]
     Indication: SUICIDE ATTEMPT
     Route: 048
     Dates: start: 20110514

REACTIONS (6)
  - SOMNOLENCE [None]
  - VOMITING [None]
  - ATAXIA [None]
  - NAUSEA [None]
  - DIZZINESS [None]
  - SUICIDE ATTEMPT [None]
